FAERS Safety Report 5008766-7 (Version None)
Quarter: 2006Q2

REPORT INFORMATION
  Report Type: 
  Country: None (occurrence: None)
  Receive Date: 20060518
  Receipt Date: 20060503
  Transmission Date: 20061013
  Serious: Yes (Other)
  Sender: FDA-Public Use
  Company Number: USA-2006-0024232

PATIENT
  Age: 43 Year
  Sex: Male

DRUGS (8)
  1. MS CONTIN [Suspect]
  2. BEXTRA [Concomitant]
  3. NEURONTIN [Concomitant]
  4. VICODIN [Concomitant]
  5. RABEPRAZOLE (RABEPRAZOLE) [Concomitant]
  6. FEXOFENADINE HCL [Concomitant]
  7. RAMIPRIL [Concomitant]
  8. OMEPRAZOLE [Concomitant]

REACTIONS (12)
  - DYSGEUSIA [None]
  - DYSPEPSIA [None]
  - DYSPNOEA [None]
  - DYSPNOEA PAROXYSMAL NOCTURNAL [None]
  - FATIGUE [None]
  - HEADACHE [None]
  - LUNG INFECTION [None]
  - ORTHOPNOEA [None]
  - PO2 DECREASED [None]
  - REGURGITATION OF FOOD [None]
  - SNORING [None]
  - SPUTUM DISCOLOURED [None]
